FAERS Safety Report 16148322 (Version 2)
Quarter: 2019Q2

REPORT INFORMATION
  Report Type: Spontaneous
  Country: IT (occurrence: IT)
  Receive Date: 20190402
  Receipt Date: 20190409
  Transmission Date: 20190711
  Serious: No
  Sender: FDA-Public Use
  Company Number: IT-PFIZER INC-2019137623

PATIENT
  Age: 7 Year
  Sex: Female

DRUGS (10)
  1. PREDNISONE. [Suspect]
     Active Substance: PREDNISONE
     Dosage: 10 MG, 1X/DAY (0.2 MG/KG/DAILY)
     Route: 048
  2. TRIAMCINOLONE HEXACETONIDE [Concomitant]
     Active Substance: TRIAMCINOLONE HEXACETONIDE
     Indication: UVEITIS
  3. METHOTREXATE SODIUM. [Suspect]
     Active Substance: METHOTREXATE SODIUM
     Indication: UVEITIS
     Dosage: 15 MG/M2, WEEKLY
  4. PREDNISONE. [Suspect]
     Active Substance: PREDNISONE
     Dosage: 25 MG, 1X/DAY (0.5 MG/KG/DAILY)
     Route: 048
  5. DEXAMETHASONE. [Suspect]
     Active Substance: DEXAMETHASONE
     Indication: UVEITIS
     Dosage: UNK
     Route: 061
  6. METHOTREXATE SODIUM. [Suspect]
     Active Substance: METHOTREXATE SODIUM
     Indication: JUVENILE IDIOPATHIC ARTHRITIS
  7. PREDNISONE. [Suspect]
     Active Substance: PREDNISONE
     Indication: UVEITIS
     Dosage: UNK
     Route: 048
  8. ADALIMUMAB [Suspect]
     Active Substance: ADALIMUMAB
     Indication: UVEITIS
     Dosage: 24 MG/M2, CYCLIC [ EVERY 2 WEEKS]
  9. ADALIMUMAB [Suspect]
     Active Substance: ADALIMUMAB
     Indication: JUVENILE IDIOPATHIC ARTHRITIS
  10. TRIAMCINOLONE HEXACETONIDE [Concomitant]
     Active Substance: TRIAMCINOLONE HEXACETONIDE
     Indication: JUVENILE IDIOPATHIC ARTHRITIS
     Dosage: UNK
     Route: 014

REACTIONS (2)
  - Alanine aminotransferase increased [Recovered/Resolved]
  - Drug ineffective [Recovered/Resolved]
